FAERS Safety Report 4757589-2 (Version None)
Quarter: 2005Q3

REPORT INFORMATION
  Report Type: 
  Country: None (occurrence: None)
  Receive Date: 20050830
  Receipt Date: 20050822
  Transmission Date: 20060218
  Serious: Yes (Hospitalization)
  Sender: FDA-Public Use
  Company Number: 200512645GDS

PATIENT
  Age: 41 Year
  Sex: Male

DRUGS (7)
  1. CIPROFLOXACIN [Suspect]
     Indication: BACTERIAL INFECTION
     Dosage: 1000 MG, TOTAL DAILY, ORAL
     Route: 048
     Dates: start: 20050717, end: 20050721
  2. CIPROFLOXACIN [Suspect]
     Indication: DIARRHOEA
     Dosage: 1000 MG, TOTAL DAILY, ORAL
     Route: 048
     Dates: start: 20050717, end: 20050721
  3. CIPROFLOXACIN [Suspect]
     Indication: GASTROINTESTINAL INFECTION
     Dosage: 1000 MG, TOTAL DAILY, ORAL
     Route: 048
     Dates: start: 20050717, end: 20050721
  4. OMEPRAZOLE [Concomitant]
  5. IMODIUM [Concomitant]
  6. BUSCOPAN [Concomitant]
  7. BIOFLORIN [Concomitant]

REACTIONS (1)
  - DYSKINESIA [None]
